FAERS Safety Report 17809433 (Version 1)
Quarter: 2020Q2

REPORT INFORMATION
  Report Type: Spontaneous
  Country: FR (occurrence: FR)
  Receive Date: 20200521
  Receipt Date: 20200521
  Transmission Date: 20200714
  Serious: Yes (Other)
  Sender: FDA-Public Use
  Company Number: FR-AUROBINDO-AUR-APL-2020-024951

PATIENT
  Age: 76 Year
  Sex: Male

DRUGS (3)
  1. METRONIDAZOLE. [Suspect]
     Active Substance: METRONIDAZOLE
     Indication: SEPSIS
     Dosage: 1500 MILLIGRAM, DAILY
     Route: 042
     Dates: start: 20200221, end: 20200227
  2. CEFTRIAXONE. [Suspect]
     Active Substance: CEFTRIAXONE
     Indication: SEPSIS
     Dosage: 1 GRAM, ONCE A DAY
     Route: 042
     Dates: start: 20200221, end: 20200227
  3. METOJECT [Suspect]
     Active Substance: METHOTREXATE SODIUM
     Indication: RHEUMATOID ARTHRITIS
     Dosage: 1 DOSAGE FORM, EVERY WEEK
     Route: 058

REACTIONS (1)
  - Pancytopenia [Recovered/Resolved]

NARRATIVE: CASE EVENT DATE: 20200225
